FAERS Safety Report 13185828 (Version 1)
Quarter: 2017Q1

REPORT INFORMATION
  Report Type: Spontaneous
  Country: US (occurrence: US)
  Receive Date: 20170203
  Receipt Date: 20170203
  Transmission Date: 20170428
  Serious: No
  Sender: FDA-Public Use
  Company Number: GXBR2016US001753

PATIENT
  Age: 40 Year
  Sex: Female

DRUGS (2)
  1. LORAZEPAM ACTAVIS 2MG [Suspect]
     Active Substance: LORAZEPAM
     Indication: ANXIETY
     Dosage: 2 MG, QHS
     Route: 048
     Dates: start: 20160428, end: 20160430
  2. LORAZEPAM ACTAVIS 2MG [Suspect]
     Active Substance: LORAZEPAM
     Indication: SLEEP DISORDER
     Dosage: 4 MG, ONCE/SINGLE
     Route: 048
     Dates: start: 20160501, end: 20160501

REACTIONS (3)
  - Drug ineffective [Not Recovered/Not Resolved]
  - Hangover [Not Recovered/Not Resolved]
  - Sedation [Not Recovered/Not Resolved]

NARRATIVE: CASE EVENT DATE: 20160428
